FAERS Safety Report 6330165-6 (Version None)
Quarter: 2009Q3

REPORT INFORMATION
  Report Type: 
  Country: None (occurrence: None)
  Receive Date: 20090827
  Receipt Date: 20090814
  Transmission Date: 20100115
  Serious: Yes (Other)
  Sender: FDA-Public Use
  Company Number: CA-RANBAXY-2009RR-24596

PATIENT
  Age: 15 Year
  Sex: Female

DRUGS (11)
  1. FLUOXETINE [Suspect]
     Indication: ANOREXIA NERVOSA
     Dosage: 20 MG, QD
  2. FLUOXETINE [Suspect]
     Dosage: 40 MG, UNK
  3. FLUOXETINE [Suspect]
     Dosage: 60 MG, QD
  4. OLANZAPINE [Suspect]
     Indication: ANOREXIA NERVOSA
     Dosage: 5 MG, QD
  5. OLANZAPINE [Suspect]
     Dosage: 2.5 MG, QD
  6. RISPERIDONE [Suspect]
     Dosage: 0.25 MG, QD
  7. RISPERIDONE [Suspect]
     Dosage: 0.5 MG, QD
  8. RISPERIDONE [Suspect]
     Dosage: 0.75 MG, QD
  9. CLONAZEPAM [Suspect]
     Dosage: 0.5 MG, BID
  10. SEROQUEL [Concomitant]
     Dosage: 25 MG, UNK
  11. SEROQUEL [Concomitant]
     Dosage: 50 MG, QD

REACTIONS (2)
  - DRUG INTERACTION [None]
  - ELECTROCARDIOGRAM QT PROLONGED [None]
